FAERS Safety Report 7551204-0 (Version None)
Quarter: 2011Q2

REPORT INFORMATION
  Report Type: 
  Country: None (occurrence: None)
  Receive Date: 20110616
  Receipt Date: 20110603
  Transmission Date: 20111010
  Serious: Yes (Hospitalization)
  Sender: FDA-Public Use
  Company Number: PHFR2011GB03158

PATIENT
  Sex: Male

DRUGS (5)
  1. LAMOTRIGINE [Concomitant]
  2. CLOZAPINE [Suspect]
     Indication: SCHIZOPHRENIA
     Dosage: 250 MG/MORNING + 500 MG/NIGHT
     Route: 048
     Dates: start: 20060509
  3. LORAZEPAM [Concomitant]
     Dosage: 1 MG, QD
  4. CLOZAPINE [Suspect]
     Dosage: 375 MG/ DAILY
     Route: 048
  5. HALOPERIDOL [Concomitant]
     Dosage: 6 MG, QD

REACTIONS (15)
  - SEPSIS [None]
  - GENERAL PHYSICAL HEALTH DETERIORATION [None]
  - MUSCULAR WEAKNESS [None]
  - GAIT DISTURBANCE [None]
  - SPINAL FRACTURE [None]
  - EPILEPSY [None]
  - HAEMOGLOBIN DECREASED [None]
  - BLOOD CREATININE INCREASED [None]
  - FALL [None]
  - THORACIC VERTEBRAL FRACTURE [None]
  - SPINAL CORD COMPRESSION [None]
  - RENAL FAILURE ACUTE [None]
  - MULTIPLE MYELOMA [None]
  - RENAL IMPAIRMENT [None]
  - ANTIPSYCHOTIC DRUG LEVEL INCREASED [None]
